FAERS Safety Report 24251004 (Version 1)
Quarter: 2024Q3

REPORT INFORMATION
  Report Type: Spontaneous
  Country: US (occurrence: US)
  Receive Date: 20240826
  Receipt Date: 20240826
  Transmission Date: 20241016
  Serious: No
  Sender: ALKERMES
  Company Number: US-ALKERMES INC.-ALK-2024-002144

PATIENT
  Age: 3 Decade
  Sex: Male

DRUGS (1)
  1. LYBALVI [Suspect]
     Active Substance: OLANZAPINE\SAMIDORPHAN L-MALATE
     Indication: Bipolar I disorder
     Dosage: 5/10 MILLIGRAM, QD
     Route: 048

REACTIONS (2)
  - Disorientation [Unknown]
  - Sedation [Unknown]
